FAERS Safety Report 6851623-1 (Version None)
Quarter: 2010Q3

REPORT INFORMATION
  Report Type: 
  Country: None (occurrence: None)
  Receive Date: 20100717
  Receipt Date: 20080716
  Transmission Date: 20110219
  Serious: No
  Sender: FDA-Public Use
  Company Number: US-PFIZER INC-2008005478

PATIENT
  Sex: Female
  Weight: 63.5 kg

DRUGS (14)
  1. CHANTIX [Suspect]
     Indication: SMOKING CESSATION THERAPY
     Dates: start: 20080114, end: 20080118
  2. FENTANYL [Concomitant]
  3. APAP TAB [Concomitant]
  4. LIDODERM [Concomitant]
  5. TEMAZEPAM [Concomitant]
  6. GABAPENTIN [Concomitant]
  7. LORAZEPAM [Concomitant]
  8. VAGIFEM [Concomitant]
  9. VITAMINS [Concomitant]
  10. VITAMIN B-12 [Concomitant]
  11. ROPINIROLE [Concomitant]
  12. MIRALAX [Concomitant]
  13. LAXATIVES [Concomitant]
  14. ALL OTHER THERAPEUTIC PRODUCTS [Concomitant]

REACTIONS (3)
  - ABDOMINAL DISCOMFORT [None]
  - ABDOMINAL PAIN UPPER [None]
  - FLATULENCE [None]
